FAERS Safety Report 9819258 (Version 1)
Quarter: 2014Q1

REPORT INFORMATION
  Report Type: Report from Study
  Country: US (occurrence: US)
  Receive Date: 20140115
  Receipt Date: 20140115
  Transmission Date: 20141002
  Serious: Yes (Hospitalization)
  Sender: FDA-Public Use
  Company Number: PHEH2014US001062

PATIENT
  Age: 49 Year
  Sex: Female
  Weight: 79.37 kg

DRUGS (7)
  1. GILENYA [Suspect]
     Indication: MULTIPLE SCLEROSIS
     Dosage: 0.5 MG, QD
     Route: 048
     Dates: start: 20120718
  2. CLONAZEPAM [Concomitant]
     Dosage: 0.5 MG, UNK
  3. SAVELLA [Concomitant]
     Dosage: 50 MG, UNK
  4. TEMAZEPAM [Concomitant]
     Dosage: 30 MG, UNK
  5. AMPHETAMINE SALTS [Concomitant]
     Dosage: 10 MG, UNK
  6. ENOXAPARIN SODIUM [Concomitant]
     Dosage: 150 MG/ML, UNK
  7. LEVOFLOXACIN [Concomitant]
     Dosage: 750 MG, UNK

REACTIONS (4)
  - Dysarthria [Recovering/Resolving]
  - Blood iron decreased [Recovering/Resolving]
  - Headache [Recovering/Resolving]
  - White blood cell count decreased [Recovering/Resolving]
